FAERS Safety Report 4371061-3 (Version None)
Quarter: 2004Q2

REPORT INFORMATION
  Report Type: 
  Country: None (occurrence: None)
  Receive Date: 20040601
  Receipt Date: 20040519
  Transmission Date: 20050107
  Serious: Yes (Death, Life-Threatening, Hospitalization, Other)
  Sender: FDA-Public Use
  Company Number: 2004033896

PATIENT
  Age: 52 Year
  Sex: Male

DRUGS (3)
  1. PHENYTOIN [Suspect]
     Indication: ILL-DEFINED DISORDER
     Dosage: 300 MG (DAILY),
  2. DEXAMETHASONE [Suspect]
     Indication: ILL-DEFINED DISORDER
     Dosage: 16 MG (DAILY),
  3. THERAPEUTIC RADIOPHARMACEUTICALS (THERAPEUTIC RADIOPHARMACEUTICALS) [Suspect]
     Indication: PALLIATIVE CARE

REACTIONS (12)
  - BACTERIAL SEPSIS [None]
  - BLISTER [None]
  - DERMATITIS BULLOUS [None]
  - DYSPHAGIA [None]
  - EPIDERMAL NECROSIS [None]
  - ERYTHEMA [None]
  - LUNG INFECTION [None]
  - MALAISE [None]
  - PNEUMONIA [None]
  - RASH GENERALISED [None]
  - RESPIRATORY FAILURE [None]
  - TOXIC EPIDERMAL NECROLYSIS [None]
